FAERS Safety Report 25990547 (Version 1)
Quarter: 2025Q4

REPORT INFORMATION
  Report Type: Spontaneous
  Country: US (occurrence: US)
  Receive Date: 20251103
  Receipt Date: 20251103
  Transmission Date: 20260117
  Serious: Yes (Death, Other)
  Sender: ELI LILLY AND COMPANY
  Company Number: US-ELI_LILLY_AND_COMPANY-US202510032812

PATIENT
  Sex: Female

DRUGS (1)
  1. MOUNJARO [Suspect]
     Active Substance: TIRZEPATIDE
     Indication: Product used for unknown indication
     Dosage: UNK UNK, UNKNOWN
     Route: 065

REACTIONS (6)
  - Hypoglycaemia [Fatal]
  - Myocardial fibrosis [Fatal]
  - Left ventricular hypertrophy [Fatal]
  - Arteriosclerosis coronary artery [Fatal]
  - Overdose [Unknown]
  - Toxicity to various agents [Unknown]
